FAERS Safety Report 14026314 (Version 2)
Quarter: 2017Q4

REPORT INFORMATION
  Report Type: Spontaneous
  Country: SE (occurrence: SE)
  Receive Date: 20170929
  Receipt Date: 20171114
  Transmission Date: 20180321
  Serious: Yes (Other)
  Sender: FDA-Public Use
  Company Number: SE-SHIRE-SE201723737

PATIENT

DRUGS (1)
  1. ELVANSE [Suspect]
     Active Substance: LISDEXAMFETAMINE DIMESYLATE
     Indication: ATTENTION DEFICIT/HYPERACTIVITY DISORDER
     Dosage: 40 MG, 1X/DAY:QD
     Route: 065
     Dates: start: 20161207, end: 20170330

REACTIONS (1)
  - Retinal vascular thrombosis [Not Recovered/Not Resolved]

NARRATIVE: CASE EVENT DATE: 20170130
